FAERS Safety Report 5341441-8 (Version None)
Quarter: 2007Q2

REPORT INFORMATION
  Report Type: 
  Country: None (occurrence: None)
  Receive Date: 20070531
  Receipt Date: 20070531
  Transmission Date: 20071010
  Serious: Yes (Other)
  Sender: FDA-Public Use
  Company Number: None

PATIENT
  Age: 63 Year
  Sex: Female
  Weight: 68.4932 kg

DRUGS (2)
  1. HYDROCODONE BITARTRATE + ACETAMINOPHEN [Suspect]
     Dosage: # 120 Q6 PO
     Route: 048
     Dates: start: 20060201
  2. OXYCODONE AND ASPIRIN [Suspect]
     Dosage: # 120 Q6 PO
     Route: 048
     Dates: start: 20070401

REACTIONS (2)
  - DRUG TOLERANCE DECREASED [None]
  - PHARMACEUTICAL PRODUCT COMPLAINT [None]
